FAERS Safety Report 5103644-7 (Version None)
Quarter: 2006Q3

REPORT INFORMATION
  Report Type: 
  Country: None (occurrence: None)
  Receive Date: 20060911
  Receipt Date: 20060911
  Transmission Date: 20061208
  Serious: Yes (Other)
  Sender: FDA-Public Use
  Company Number: None

PATIENT
  Age: 32 Year
  Sex: Female
  Weight: 47.6277 kg

DRUGS (2)
  1. YASMIN [Suspect]
     Indication: ACNE
     Dosage: 1 PER DAY
     Dates: start: 20060701, end: 20060830
  2. YASMIN [Suspect]
     Indication: MENSTRUATION IRREGULAR
     Dosage: 1 PER DAY
     Dates: start: 20060701, end: 20060830

REACTIONS (9)
  - ANOREXIA [None]
  - ANXIETY [None]
  - ASTHENIA [None]
  - FEAR [None]
  - HYPERTHYROIDISM [None]
  - ILL-DEFINED DISORDER [None]
  - INSOMNIA [None]
  - MYALGIA [None]
  - WEIGHT DECREASED [None]
